FAERS Safety Report 20861418 (Version 1)
Quarter: 2022Q2

REPORT INFORMATION
  Report Type: Spontaneous
  Country: US (occurrence: US)
  Receive Date: 20220523
  Receipt Date: 20220523
  Transmission Date: 20220721
  Serious: No
  Sender: FDA-Public Use
  Company Number: US-BRISTOL-MYERS SQUIBB COMPANY-2022-044629

PATIENT
  Age: 65 Year
  Sex: Male

DRUGS (1)
  1. REVLIMID [Suspect]
     Active Substance: LENALIDOMIDE
     Indication: Urinary incontinence
     Dosage: TAKE 1 CAPSULE DAILY BY MOUTH ON DAYS 1-14 EACH CYCLE.
     Route: 048
     Dates: start: 20220408

REACTIONS (2)
  - Prostatic disorder [Unknown]
  - Intentional device use issue [Unknown]
